FAERS Safety Report 5767342-9 (Version None)
Quarter: 2008Q2

REPORT INFORMATION
  Report Type: 
  Country: None (occurrence: None)
  Receive Date: 20080612
  Receipt Date: 20080602
  Transmission Date: 20081010
  Serious: Yes (Hospitalization)
  Sender: FDA-Public Use
  Company Number: A0724860A

PATIENT
  Age: 41 Year
  Sex: Male
  Weight: 136.4 kg

DRUGS (4)
  1. AVODART [Suspect]
     Indication: BENIGN PROSTATIC HYPERPLASIA
     Dosage: .5MG PER DAY
     Route: 048
     Dates: start: 20080418, end: 20080421
  2. CLONIDINE [Concomitant]
     Dosage: .3MG THREE TIMES PER DAY
     Route: 048
  3. DIOVAN [Concomitant]
     Dosage: 300MG PER DAY
     Route: 048
  4. CARDIZEM [Concomitant]
     Dosage: 120MG PER DAY
     Route: 048

REACTIONS (6)
  - BLOOD CREATINE PHOSPHOKINASE INCREASED [None]
  - CYSTOCELE [None]
  - MYOGLOBINURIA [None]
  - PYREXIA [None]
  - RESIDUAL URINE [None]
  - RHABDOMYOLYSIS [None]
